FAERS Safety Report 6179964-4 (Version None)
Quarter: 2009Q2

REPORT INFORMATION
  Report Type: 
  Country: None (occurrence: None)
  Receive Date: 20090501
  Receipt Date: 20090420
  Transmission Date: 20091009
  Serious: Yes (Hospitalization)
  Sender: FDA-Public Use
  Company Number: 234402K09USA

PATIENT
  Age: 43 Year
  Sex: Female
  Weight: 68 kg

DRUGS (9)
  1. REBIF [Suspect]
     Indication: MULTIPLE SCLEROSIS
     Dosage: 44 MCG, 3 IN 1 WEEKS, SUBCUTANEOUS
     Route: 058
     Dates: start: 20090209
  2. SINGULAIR (MONTELUKAST /01362601/) [Concomitant]
  3. IPRATROPIUM BROMIDE [Concomitant]
  4. ZYRTEC [Concomitant]
  5. PATANOL EYE DROPS (OLOPATADINE HYDROCHLORIDE) [Concomitant]
  6. FLUTICASONE (FLUTICASONE /00972201/) [Concomitant]
  7. LEVOXYL [Concomitant]
  8. ADDERALL (OBETROL /01345401/) [Concomitant]
  9. MULTIVITAMIN [Concomitant]

REACTIONS (3)
  - EAR INFECTION [None]
  - GASTROINTESTINAL INFECTION [None]
  - UPPER RESPIRATORY TRACT INFECTION [None]
